FAERS Safety Report 6256440-1 (Version None)
Quarter: 2009Q3

REPORT INFORMATION
  Report Type: 
  Country: None (occurrence: None)
  Receive Date: 20090706
  Receipt Date: 20090630
  Transmission Date: 20100115
  Serious: Yes (Other)
  Sender: FDA-Public Use
  Company Number: IT-AMGEN-UK353800

PATIENT
  Sex: Male
  Weight: 74 kg

DRUGS (5)
  1. VECTIBIX [Suspect]
     Indication: COLORECTAL CANCER
     Route: 042
     Dates: start: 20090102, end: 20090528
  2. BENERVA [Concomitant]
     Route: 048
     Dates: start: 20070101
  3. BISOPROLOL FUMARATE [Concomitant]
     Route: 048
     Dates: start: 20000101
  4. TAMSULOSIN HCL [Concomitant]
     Route: 048
     Dates: start: 20060101
  5. LERCANIDIPINE [Concomitant]
     Route: 048
     Dates: start: 20000101

REACTIONS (1)
  - FOLLICULITIS [None]
